FAERS Safety Report 19768035 (Version 2)
Quarter: 2021Q3

REPORT INFORMATION
  Report Type: Spontaneous
  Country: US (occurrence: US)
  Receive Date: 20210831
  Receipt Date: 20210928
  Transmission Date: 20211014
  Serious: No
  Sender: FDA-Public Use
  Company Number: US-UNITED THERAPEUTICS-UNT-2021-011692

PATIENT
  Sex: Female

DRUGS (3)
  1. TYVASO [Suspect]
     Active Substance: TREPROSTINIL
     Indication: PULMONARY ARTERIAL HYPERTENSION
     Dosage: UNK
     Dates: start: 20210528
  2. TYVASO [Suspect]
     Active Substance: TREPROSTINIL
     Dosage: 54 ?G, QID
     Dates: start: 2021
  3. TYVASO [Suspect]
     Active Substance: TREPROSTINIL
     Dosage: 24 ?G, QID
     Dates: start: 2021, end: 2021

REACTIONS (10)
  - Feeling abnormal [Not Recovered/Not Resolved]
  - Diarrhoea [Not Recovered/Not Resolved]
  - Headache [Not Recovered/Not Resolved]
  - Insomnia [Unknown]
  - Nausea [Unknown]
  - Thinking abnormal [Unknown]
  - Wheezing [Unknown]
  - Chest discomfort [Not Recovered/Not Resolved]
  - Dizziness [Unknown]
  - Depression [Unknown]

NARRATIVE: CASE EVENT DATE: 2021
